FAERS Safety Report 4872039-3 (Version None)
Quarter: 2005Q4

REPORT INFORMATION
  Report Type: 
  Country: None (occurrence: None)
  Receive Date: 20051230
  Receipt Date: 20051216
  Transmission Date: 20060501
  Serious: Yes (Congenital Anomaly, Other)
  Sender: FDA-Public Use
  Company Number: 2005US-01362

PATIENT
  Sex: Male

DRUGS (1)
  1. ZIDOVUDINE [Suspect]
     Indication: PROPHYLAXIS AGAINST HIV INFECTION
     Dosage: TRANSPLACENTAL
     Route: 064

REACTIONS (16)
  - ANAEMIA NEONATAL [None]
  - BIOPSY MUSCLE ABNORMAL [None]
  - CAESAREAN SECTION [None]
  - CONGENITAL CENTRAL NERVOUS SYSTEM ANOMALY [None]
  - DRUG EXPOSURE DURING PREGNANCY [None]
  - ERYTHROPOIESIS ABNORMAL [None]
  - EYE MOVEMENT DISORDER [None]
  - HYPERLACTACIDAEMIA [None]
  - HYPOTONIA NEONATAL [None]
  - INFANTILE APNOEIC ATTACK [None]
  - LIPIDS INCREASED [None]
  - MITOCHONDRIAL DNA DELETION [None]
  - NEURODEGENERATIVE DISORDER [None]
  - PSYCHOMOTOR SKILLS IMPAIRED [None]
  - TACHYPNOEA [None]
  - VISUAL DISTURBANCE [None]
